FAERS Safety Report 7116307-3 (Version None)
Quarter: 2010Q4

REPORT INFORMATION
  Report Type: 
  Country: None (occurrence: None)
  Receive Date: 20101122
  Receipt Date: 20101112
  Transmission Date: 20110411
  Serious: Yes (Other)
  Sender: FDA-Public Use
  Company Number: A0789905A

PATIENT
  Sex: Male
  Weight: 63.5 kg

DRUGS (6)
  1. ELTROMBOPAG [Suspect]
     Indication: THROMBOCYTOPENIA
     Dosage: 25MG PER DAY
     Route: 048
     Dates: start: 20080917, end: 20080930
  2. ELTROMBOPAG [Suspect]
     Dosage: 25MG PER DAY
     Route: 048
     Dates: start: 20081001
  3. PEG-INTRON [Suspect]
     Dosage: 100MCG WEEKLY
     Route: 058
     Dates: start: 20080930
  4. REBETOL [Suspect]
     Route: 048
     Dates: start: 20080930
  5. ACTOS [Concomitant]
     Indication: DIABETES MELLITUS
  6. DIAMICRON [Concomitant]
     Indication: DIABETES MELLITUS

REACTIONS (1)
  - CATARACT [None]
